FAERS Safety Report 9943647 (Version 2)
Quarter: 2014Q1

REPORT INFORMATION
  Report Type: Spontaneous
  Country: US (occurrence: US)
  Receive Date: 20140303
  Receipt Date: 20140303
  Transmission Date: 20141002
  Serious: No
  Sender: FDA-Public Use
  Company Number: US-ABBVIE-13P-163-1031060-00

PATIENT
  Sex: Female

DRUGS (4)
  1. HUMIRA [Suspect]
     Indication: PSORIASIS
     Route: 058
     Dates: start: 201110, end: 201212
  2. LEVOXYL [Concomitant]
     Indication: THYROIDECTOMY
  3. SYNTHROID [Concomitant]
     Indication: THYROIDECTOMY
  4. T3 [Concomitant]
     Indication: THYROIDECTOMY

REACTIONS (4)
  - Breast mass [Not Recovered/Not Resolved]
  - Drug dose omission [Not Recovered/Not Resolved]
  - Arthralgia [Recovered/Resolved]
  - Arthralgia [Recovered/Resolved]
